FAERS Safety Report 9732502 (Version 2)
Quarter: 2014Q1

REPORT INFORMATION
  Report Type: Report from Study
  Country: GB (occurrence: GB)
  Receive Date: 20131205
  Receipt Date: 20140328
  Transmission Date: 20141002
  Serious: Yes (Other)
  Sender: FDA-Public Use
  Company Number: GB-JNJFOC-20131118438

PATIENT
  Age: 55 Year
  Sex: Male
  Weight: 126 kg

DRUGS (1)
  1. USTEKINUMAB [Suspect]
     Indication: PSORIASIS
     Route: 058
     Dates: start: 20121127

REACTIONS (1)
  - Basal cell carcinoma [Not Recovered/Not Resolved]
